FAERS Safety Report 24902191 (Version 2)
Quarter: 2025Q1

REPORT INFORMATION
  Report Type: Spontaneous
  Country: JP (occurrence: JP)
  Receive Date: 20250129
  Receipt Date: 20250327
  Transmission Date: 20250409
  Serious: Yes (Other)
  Sender: AMGEN
  Company Number: JP-AMGEN-JPNSP2025013650

PATIENT
  Age: 71 Year
  Sex: Female

DRUGS (11)
  1. EVENITY [Suspect]
     Active Substance: ROMOSOZUMAB-AQQG
     Indication: Osteoporosis
     Route: 058
  2. EVENITY [Suspect]
     Active Substance: ROMOSOZUMAB-AQQG
     Route: 058
     Dates: start: 20241113
  3. INFLUENZA VIRUS VACCINE [Suspect]
     Active Substance: INFLUENZA VIRUS VACCINE
     Indication: Product used for unknown indication
     Route: 065
  4. IGURATIMOD [Concomitant]
     Active Substance: IGURATIMOD
     Dosage: 2.5 MILLIGRAM, QD
     Dates: start: 20231121
  5. LORAZEPAM [Concomitant]
     Active Substance: LORAZEPAM
     Dosage: 0.5 MILLIGRAM, QD
     Dates: start: 201509
  6. OMARIGLIPTIN [Concomitant]
     Active Substance: OMARIGLIPTIN
     Dosage: 12.5 MILLIGRAM, QWK
     Dates: start: 20170220
  7. REBAMIPIDE [Concomitant]
     Active Substance: REBAMIPIDE
     Dosage: 100 MILLIGRAM, BID
     Dates: start: 20160808
  8. DAYVIGO [Concomitant]
     Active Substance: LEMBOREXANT
     Dosage: 5 MILLIGRAM, QD
     Dates: start: 20220117
  9. NITRAZEPAM [Concomitant]
     Active Substance: NITRAZEPAM
     Dosage: 5 MILLIGRAM, QD
     Dates: start: 20200114
  10. METHOTREXATE [Concomitant]
     Active Substance: METHOTREXATE
     Dosage: 8 MILLIGRAM, BID
     Dates: start: 20150928
  11. FOLIC ACID [Concomitant]
     Active Substance: FOLIC ACID
     Dosage: 5 MILLIGRAM, QD

REACTIONS (6)
  - Anaphylactic reaction [Recovered/Resolved]
  - Off label use [Unknown]
  - Blood creatine phosphokinase decreased [Unknown]
  - Blood uric acid decreased [Unknown]
  - Blood triglycerides increased [Unknown]
  - Low density lipoprotein increased [Unknown]

NARRATIVE: CASE EVENT DATE: 20240423
